FAERS Safety Report 7934318-2 (Version None)
Quarter: 2011Q4

REPORT INFORMATION
  Report Type: 
  Country: None (occurrence: None)
  Receive Date: 20111122
  Receipt Date: 20111111
  Transmission Date: 20120403
  Serious: Yes (Hospitalization)
  Sender: FDA-Public Use
  Company Number: US-GLAXOSMITHKLINE-A0791002A

PATIENT
  Age: 57 Year
  Sex: Female
  Weight: 88.2 kg

DRUGS (6)
  1. AVANDIA [Suspect]
     Indication: DIABETES MELLITUS
     Dosage: 8MG TWICE PER DAY
     Route: 048
     Dates: start: 20000403, end: 20070315
  2. GLUCOPHAGE [Concomitant]
  3. ESTRADIOL [Concomitant]
  4. PRILOSEC [Concomitant]
  5. LIPITOR [Concomitant]
  6. VIOXX [Concomitant]

REACTIONS (2)
  - CORONARY ARTERY DISEASE [None]
  - MYOCARDIAL INFARCTION [None]
